FAERS Safety Report 15495827 (Version 1)
Quarter: 2018Q4

REPORT INFORMATION
  Report Type: Spontaneous
  Country: US (occurrence: US)
  Receive Date: 20181013
  Receipt Date: 20181013
  Transmission Date: 20190205
  Serious: Yes (Life-Threatening, Hospitalization)
  Sender: FDA-Public Use
  Company Number: US-009507513-0807USA03884

PATIENT
  Age: 69 Year
  Sex: Male

DRUGS (11)
  1. FLOXACILLIN [Suspect]
     Active Substance: FLUCLOXACILLIN
     Dosage: 1 G, QID
  2. FOLIC ACID. [Concomitant]
     Active Substance: FOLIC ACID
  3. ATORVASTATIN [Suspect]
     Active Substance: ATORVASTATIN
     Dosage: 40 MG, QD
  4. ASPIRIN. [Concomitant]
     Active Substance: ASPIRIN
  5. DICLOFENAC [Suspect]
     Active Substance: DICLOFENAC
     Dosage: 100 MG, QD
  6. ZETIA [Suspect]
     Active Substance: EZETIMIBE
     Dosage: 10 MG, QD
     Route: 048
  7. FUSIDATE SODIUM [Suspect]
     Active Substance: FUSIDATE SODIUM
     Dosage: 750 MG, TID
  8. ATENOLOL. [Concomitant]
     Active Substance: ATENOLOL
  9. ESOMEPRAZOLE. [Concomitant]
     Active Substance: ESOMEPRAZOLE MAGNESIUM
  10. RAMIPRIL. [Concomitant]
     Active Substance: RAMIPRIL
  11. TRAMADOL HYDROCHLORIDE. [Concomitant]
     Active Substance: TRAMADOL HYDROCHLORIDE
     Dosage: MK-9384

REACTIONS (2)
  - Acute kidney injury [Unknown]
  - Rhabdomyolysis [Unknown]
